FAERS Safety Report 9605892 (Version 2)
Quarter: 2013Q4

REPORT INFORMATION
  Report Type: Spontaneous
  Country: CA (occurrence: CA)
  Receive Date: 20131008
  Receipt Date: 20131028
  Transmission Date: 20140711
  Serious: Yes (Death, Other)
  Sender: FDA-Public Use
  Company Number: CA-ACTELION-A-NJ2013-89011

PATIENT
  Age: 35 Year
  Sex: Female

DRUGS (8)
  1. VELETRI [Suspect]
     Indication: PULMONARY ARTERIAL HYPERTENSION
     Dosage: 16 NG/KG, PER MIN
     Route: 042
     Dates: start: 20130822, end: 20130921
  2. ZOPICLONE [Concomitant]
     Dosage: 7.5 MG, TABS II QD
  3. REVATIO [Concomitant]
     Dosage: 20 UNK, UNK
  4. LASIX [Concomitant]
     Dosage: 80 MG, BID
  5. FLONASE [Concomitant]
     Dosage: 100 MCG, EACH NOSTRIL QD
  6. WARFARIN [Concomitant]
     Dosage: 3 MG TABS II QD
  7. COLACE [Concomitant]
     Dosage: 200 MG, QHS
  8. PICOLAX [Concomitant]
     Dosage: 1 DOSE/DAY

REACTIONS (5)
  - Sudden death [Fatal]
  - Pulmonary arterial hypertension [Unknown]
  - Condition aggravated [Unknown]
  - Myalgia [Unknown]
  - Weight increased [Unknown]
